FAERS Safety Report 4747943-7 (Version None)
Quarter: 2005Q3

REPORT INFORMATION
  Report Type: 
  Country: None (occurrence: None)
  Receive Date: 20050818
  Receipt Date: 20050810
  Transmission Date: 20060218
  Serious: Yes (Death)
  Sender: FDA-Public Use
  Company Number: US-ABBOTT-05P-163-0308022-00

PATIENT

DRUGS (3)
  1. DEPAKOTE [Suspect]
     Indication: EPILEPSY
     Dates: start: 20050730, end: 20050801
  2. CLOPIDOGREL BISULFATE [Concomitant]
     Indication: THROMBOSIS PROPHYLAXIS
     Dates: start: 20050730, end: 20050801
  3. ASPIRIN [Concomitant]
     Indication: THROMBOSIS PROPHYLAXIS
     Dates: start: 20050730, end: 20050801

REACTIONS (1)
  - HAEMORRHAGE INTRACRANIAL [None]
